FAERS Safety Report 5193848-X (Version None)
Quarter: 2006Q4

REPORT INFORMATION
  Report Type: 
  Country: None (occurrence: None)
  Receive Date: 20061228
  Receipt Date: 20061212
  Transmission Date: 20070319
  Serious: Yes (Other)
  Sender: FDA-Public Use
  Company Number: JP-AVENTIS-200613881JP

PATIENT
  Age: 67 Year
  Sex: Female

DRUGS (11)
  1. TAXOTERE [Suspect]
     Indication: ADENOCARCINOMA
     Route: 041
     Dates: start: 20061122, end: 20061122
  2. TAXOTERE [Suspect]
     Indication: NEOPLASM RECURRENCE
     Route: 041
     Dates: start: 20061122, end: 20061122
  3. MUCOSTA [Concomitant]
  4. CLARITHROMYCIN [Concomitant]
  5. GASMOTIN [Concomitant]
  6. MUCODYNE [Concomitant]
  7. DIOVANE [Concomitant]
  8. CALBLOCK [Concomitant]
  9. PAXIL [Concomitant]
  10. PREDONINE                          /00016201/ [Concomitant]
  11. MYSLEE [Concomitant]

REACTIONS (3)
  - BRONCHIOLOALVEOLAR CARCINOMA [None]
  - COAGULOPATHY [None]
  - TUMOUR LYSIS SYNDROME [None]
